FAERS Safety Report 21610520 (Version 2)
Quarter: 2022Q4

REPORT INFORMATION
  Report Type: Spontaneous
  Country: US (occurrence: US)
  Receive Date: 20221117
  Receipt Date: 20221213
  Transmission Date: 20230112
  Serious: Yes (Hospitalization)
  Sender: FDA-Public Use
  Company Number: US-TEVA-2022-US-2825339

PATIENT
  Age: 55 Year
  Sex: Male

DRUGS (4)
  1. ALPRAZOLAM [Suspect]
     Active Substance: ALPRAZOLAM
     Indication: Dementia
     Route: 048
  2. LORAZEPAM [Suspect]
     Active Substance: LORAZEPAM
     Indication: Dementia
     Route: 048
  3. TRAMADOL [Suspect]
     Active Substance: TRAMADOL
     Indication: Dementia
     Route: 048
  4. NALOXONE [Suspect]
     Active Substance: NALOXONE
     Indication: Depressed level of consciousness
     Route: 045

REACTIONS (4)
  - Depressed level of consciousness [Recovered/Resolved]
  - Toxicity to various agents [Unknown]
  - Overdose [Unknown]
  - Drug ineffective [Unknown]
